FAERS Safety Report 13691291 (Version 1)
Quarter: 2017Q2

REPORT INFORMATION
  Report Type: Spontaneous
  Country: US (occurrence: US)
  Receive Date: 20170626
  Receipt Date: 20170626
  Transmission Date: 20170830
  Serious: No
  Sender: FDA-Public Use
  Company Number: US-ROCHE-GNE311813

PATIENT
  Age: 67 Year
  Sex: Male
  Weight: 125.13 kg

DRUGS (1)
  1. TNKASE [Suspect]
     Active Substance: TENECTEPLASE
     Indication: CEREBROVASCULAR ACCIDENT
     Dosage: 90 MG, UNK
     Route: 042
     Dates: start: 20101223

REACTIONS (2)
  - Medication error [Unknown]
  - Mouth haemorrhage [None]

NARRATIVE: CASE EVENT DATE: 20101223
